FAERS Safety Report 16711122 (Version 1)
Quarter: 2019Q4

REPORT INFORMATION
  Report Type: Spontaneous
  Country: US (occurrence: US)
  Receive Date: 20190816
  Receipt Date: 20190816
  Transmission Date: 20200122
  Serious: No
  Sender: FDA-Public Use
  Company Number: None

PATIENT
  Sex: Female

DRUGS (1)
  1. MICROZIDE [Suspect]
     Active Substance: HYDROCHLOROTHIAZIDE

REACTIONS (4)
  - Treatment failure [None]
  - Body mass index increased [None]
  - Adverse reaction [None]
  - Blood triglycerides increased [None]
